FAERS Safety Report 10313877 (Version 2)
Quarter: 2014Q3

REPORT INFORMATION
  Report Type: Spontaneous
  Country: US (occurrence: US)
  Receive Date: 20140718
  Receipt Date: 20140718
  Transmission Date: 20150326
  Serious: Yes (Disabling, Other)
  Sender: FDA-Public Use
  Company Number: US-FRI-1000058833

PATIENT
  Age: 36 Year
  Sex: Female
  Weight: 148 kg

DRUGS (2)
  1. SAPHRIS [Suspect]
     Active Substance: ASENAPINE MALEATE
     Indication: BIPOLAR II DISORDER
     Dosage: 10 MG
     Route: 060
     Dates: start: 201204, end: 20120801
  2. SAPHRIS [Suspect]
     Active Substance: ASENAPINE MALEATE
     Indication: BIPOLAR II DISORDER
     Dosage: 5 MG QHS
     Route: 060
     Dates: start: 201203, end: 201204

REACTIONS (4)
  - Nervous system disorder [Not Recovered/Not Resolved]
  - Dry mouth [Unknown]
  - Movement disorder [Not Recovered/Not Resolved]
  - Pain [Not Recovered/Not Resolved]

NARRATIVE: CASE EVENT DATE: 2012
